FAERS Safety Report 12154638 (Version 2)
Quarter: 2016Q2

REPORT INFORMATION
  Report Type: Report from Study
  Country: TN (occurrence: TN)
  Receive Date: 20160307
  Receipt Date: 20160524
  Transmission Date: 20160815
  Serious: No
  Sender: FDA-Public Use
  Company Number: PHHY2016TN027566

PATIENT
  Age: 59 Year
  Sex: Female

DRUGS (3)
  1. TASIGNA [Suspect]
     Active Substance: NILOTINIB
     Indication: CHRONIC MYELOID LEUKAEMIA
     Dosage: 200 MG, BID (2 X 2 CAPSULES/ DAY)
     Route: 048
     Dates: start: 201511
  2. TASIGNA [Suspect]
     Active Substance: NILOTINIB
     Dosage: 2 CAPSULES X 1/ DAY
     Route: 048
  3. TASIGNA [Suspect]
     Active Substance: NILOTINIB
     Dosage: 1 CAPSULE DAILY INSTEAD 2 CAPSULES TWICE A DAY

REACTIONS (1)
  - Platelet count decreased [Recovering/Resolving]

NARRATIVE: CASE EVENT DATE: 201601
